FAERS Safety Report 13535799 (Version 2)
Quarter: 2017Q3

REPORT INFORMATION
  Report Type: Spontaneous
  Country: US (occurrence: US)
  Receive Date: 20170511
  Receipt Date: 20170725
  Transmission Date: 20171127
  Serious: Yes (Other)
  Sender: FDA-Public Use
  Company Number: US-D.O.R.C. INTERNATIONAL, B.V.-2020588

PATIENT
  Age: 71 Year
  Sex: Female

DRUGS (2)
  1. VISIONBLUE [Suspect]
     Active Substance: TRYPAN BLUE
     Indication: CATARACT
     Route: 047
     Dates: start: 20170321, end: 20170321
  2. MIOCHOL E [Concomitant]
     Active Substance: ACETYLCHOLINE CHLORIDE
     Dates: start: 20170321, end: 20170321

REACTIONS (1)
  - Corneal oedema [Recovered/Resolved]

NARRATIVE: CASE EVENT DATE: 20170321
